FAERS Safety Report 8760649 (Version 2)
Quarter: 2012Q4

REPORT INFORMATION
  Report Type: 
  Country: NL (occurrence: NL)
  Receive Date: 20120830
  Receipt Date: 20121027
  Transmission Date: 20130627
  Serious: Yes (Disabling)
  Sender: FDA-Public Use
  Company Number: NL-MERCK-1208NLD008178

PATIENT
  Age: 63 Year
  Sex: Male

DRUGS (4)
  1. SINEMET CR 125 [Suspect]
     Dosage: 125 mg, qid
     Route: 048
     Dates: start: 201111
  2. SERTRALINE HYDROCHLORIDE [Concomitant]
  3. ZOPICLONE [Concomitant]
  4. OXAZEPAM [Concomitant]

REACTIONS (8)
  - Walking disability [Not Recovered/Not Resolved]
  - Hyperhidrosis [Not Recovered/Not Resolved]
  - Chills [Not Recovered/Not Resolved]
  - Muscle spasms [Not Recovered/Not Resolved]
  - Extrasystoles [Not Recovered/Not Resolved]
  - Head discomfort [Not Recovered/Not Resolved]
  - Arrhythmia [Not Recovered/Not Resolved]
  - Tremor [Not Recovered/Not Resolved]
